FAERS Safety Report 12167555 (Version 6)
Quarter: 2016Q3

REPORT INFORMATION
  Report Type: Spontaneous
  Country: US (occurrence: US)
  Receive Date: 20160310
  Receipt Date: 20160815
  Transmission Date: 20161109
  Serious: Yes (Hospitalization, Other)
  Sender: FDA-Public Use
  Company Number: US-GLAXOSMITHKLINE-US2016032344

PATIENT
  Age: 45 Year
  Sex: Female

DRUGS (9)
  1. BENLYSTA [Suspect]
     Active Substance: BELIMUMAB
     Dosage: UNK
     Dates: start: 20160106
  2. DIPHENHYDRAMINE. [Concomitant]
     Active Substance: DIPHENHYDRAMINE
  3. ADVIL [Concomitant]
     Active Substance: IBUPROFEN
  4. CLONAZEPAM. [Concomitant]
     Active Substance: CLONAZEPAM
  5. PREDNISONE. [Concomitant]
     Active Substance: PREDNISONE
  6. BENLYSTA [Suspect]
     Active Substance: BELIMUMAB
     Dosage: UNK
  7. BENADRYL [Concomitant]
     Active Substance: DIPHENHYDRAMINE HYDROCHLORIDE
  8. BENLYSTA [Suspect]
     Active Substance: BELIMUMAB
     Indication: SYSTEMIC LUPUS ERYTHEMATOSUS
     Dosage: UNK, VA
     Route: 042
     Dates: start: 20160125
  9. ZYRTEC [Concomitant]
     Active Substance: CETIRIZINE HYDROCHLORIDE

REACTIONS (10)
  - Pharyngitis [Unknown]
  - Weight increased [Unknown]
  - Hospitalisation [Unknown]
  - Systemic lupus erythematosus [Not Recovered/Not Resolved]
  - Rash [Unknown]
  - Ill-defined disorder [Unknown]
  - Headache [Recovered/Resolved]
  - Hypersomnia [Recovered/Resolved]
  - Feeling abnormal [Unknown]
  - Drug ineffective [Recovered/Resolved]

NARRATIVE: CASE EVENT DATE: 2016
